FAERS Safety Report 6455437-6 (Version None)
Quarter: 2009Q4

REPORT INFORMATION
  Report Type: 
  Country: None (occurrence: None)
  Receive Date: 20091125
  Receipt Date: 20091007
  Transmission Date: 20100525
  Serious: No
  Sender: FDA-Public Use
  Company Number: US-ABBOTT-09P-163-0571552-00

PATIENT
  Sex: Female
  Weight: 50.848 kg

DRUGS (10)
  1. SIMCOR [Suspect]
     Indication: BLOOD CHOLESTEROL ABNORMAL
     Dosage: 1000/20MG
     Dates: start: 20080601
  2. SIMCOR [Suspect]
     Dates: start: 20070101
  3. ACCUPRIL [Concomitant]
     Indication: HYPERTENSION
     Dates: start: 19990101
  4. NEURONTIN [Concomitant]
     Indication: NEURALGIA
  5. HYDROCODONE [Concomitant]
     Indication: NEURALGIA
  6. ASPIRIN [Concomitant]
     Indication: DRUG USE FOR UNKNOWN INDICATION
     Route: 048
  7. FISH OIL [Concomitant]
     Indication: DRUG USE FOR UNKNOWN INDICATION
     Dosage: DAILY
     Route: 048
  8. TIATIZ [Concomitant]
     Indication: HYPERTENSION
     Route: 048
  9. ONE A DAY VITAMIN [Concomitant]
     Indication: DRUG USE FOR UNKNOWN INDICATION
     Dosage: DAILY
     Route: 048
  10. CALCIUM [Concomitant]
     Indication: DRUG USE FOR UNKNOWN INDICATION
     Route: 048

REACTIONS (8)
  - ASPARTATE AMINOTRANSFERASE INCREASED [None]
  - DIVERTICULUM [None]
  - ERYTHEMA [None]
  - FAECES HARD [None]
  - FIBROCYSTIC BREAST DISEASE [None]
  - FLUSHING [None]
  - HEPATIC ENZYME INCREASED [None]
  - PRURITUS [None]
